FAERS Safety Report 5717124-9 (Version None)
Quarter: 2008Q2

REPORT INFORMATION
  Report Type: 
  Country: None (occurrence: None)
  Receive Date: 20080423
  Receipt Date: 20080410
  Transmission Date: 20081010
  Serious: Yes (Other)
  Sender: FDA-Public Use
  Company Number: US-1165828

PATIENT
  Age: 62 Year
  Sex: Female

DRUGS (3)
  1. TRIAMCINOLONE ACETONIDE [Suspect]
     Indication: UVEITIS
     Dosage: 4 MG INTRAVITREAL INTRAOCULAR
     Dates: start: 20080407, end: 20080407
  2. PRED FORTE [Concomitant]
  3. ATROPINE SULFATE [Concomitant]

REACTIONS (6)
  - BACTERIAL INFECTION [None]
  - ENDOPHTHALMITIS [None]
  - POST PROCEDURAL COMPLICATION [None]
  - VITREOUS DISORDER [None]
  - VITREOUS OPACITIES [None]
  - VITRITIS [None]
